FAERS Safety Report 19106984 (Version 4)
Quarter: 2021Q3

REPORT INFORMATION
  Report Type: Spontaneous
  Country: US (occurrence: US)
  Receive Date: 20210408
  Receipt Date: 20210709
  Transmission Date: 20211014
  Serious: Yes (Disabling, Other)
  Sender: FDA-Public Use
  Company Number: US-PFIZER INC-2021306069

PATIENT
  Age: 63 Year
  Sex: Female

DRUGS (1)
  1. XELJANZ [Suspect]
     Active Substance: TOFACITINIB CITRATE
     Dosage: 5 MG

REACTIONS (14)
  - Mental impairment [Unknown]
  - Diarrhoea [Unknown]
  - Tremor [Unknown]
  - General physical health deterioration [Unknown]
  - Nervousness [Unknown]
  - Crohn^s disease [Unknown]
  - Rheumatoid arthritis [Unknown]
  - Type 2 diabetes mellitus [Unknown]
  - Intentional product misuse [Unknown]
  - Arthralgia [Unknown]
  - Laboratory test abnormal [Unknown]
  - Pain [Unknown]
  - Joint swelling [Unknown]
  - Coronary artery disease [Unknown]
